FAERS Safety Report 21132279 (Version 2)
Quarter: 2025Q2

REPORT INFORMATION
  Report Type: Spontaneous
  Country: US (occurrence: US)
  Receive Date: 20220726
  Receipt Date: 20250619
  Transmission Date: 20250716
  Serious: Yes (Hospitalization, Other)
  Sender: AUROBINDO
  Company Number: US-AUROBINDO-AUR-APL-2022-029245

PATIENT
  Age: 39 Year
  Sex: Male

DRUGS (2)
  1. LIDOCAINE [Suspect]
     Active Substance: LIDOCAINE
     Indication: Headache
     Route: 065
  2. BUPIVACAINE [Concomitant]
     Active Substance: BUPIVACAINE
     Indication: Product used for unknown indication
     Route: 065

REACTIONS (1)
  - Treatment failure [Unknown]
